FAERS Safety Report 5839325-1 (Version None)
Quarter: 2008Q3

REPORT INFORMATION
  Report Type: 
  Country: None (occurrence: None)
  Receive Date: 20080808
  Receipt Date: 20080730
  Transmission Date: 20090109
  Serious: Yes (Other)
  Sender: FDA-Public Use
  Company Number: FR-PFIZER INC-2008064353

PATIENT
  Sex: Male
  Weight: 58 kg

DRUGS (6)
  1. SU-011,248 [Suspect]
     Indication: THYROID CANCER
  2. INIPOMP [Concomitant]
  3. CELECTOL [Concomitant]
  4. ASPIRIN [Concomitant]
  5. LEVOTHYROX [Concomitant]
  6. CIPRALAN [Concomitant]

REACTIONS (5)
  - BURN OESOPHAGEAL [None]
  - DIARRHOEA [None]
  - DYSPHAGIA [None]
  - HYPOPHAGIA [None]
  - WEIGHT DECREASED [None]
